FAERS Safety Report 11141707 (Version 1)
Quarter: 2015Q2

REPORT INFORMATION
  Report Type: Spontaneous
  Country: US (occurrence: US)
  Receive Date: 20150525
  Receipt Date: 20150525
  Transmission Date: 20150821
  Serious: No
  Sender: FDA-Public Use
  Company Number: US-JNJFOC-20140811044

PATIENT
  Age: 8 Year
  Sex: Male

DRUGS (2)
  1. RISPERDIONE [Suspect]
     Active Substance: RISPERIDONE
     Indication: IMPULSIVE BEHAVIOUR
     Route: 065
  2. RISPERDIONE [Suspect]
     Active Substance: RISPERIDONE
     Indication: TIC
     Route: 065

REACTIONS (1)
  - Product use issue [Unknown]
